FAERS Safety Report 25877202 (Version 1)
Quarter: 2025Q4

REPORT INFORMATION
  Report Type: Spontaneous
  Country: CN (occurrence: CN)
  Receive Date: 20251003
  Receipt Date: 20251003
  Transmission Date: 20260118
  Serious: Yes (Other)
  Sender: BAXTER
  Company Number: None

PATIENT
  Age: 36 Year
  Sex: Female

DRUGS (4)
  1. CYCLOPHOSPHAMIDE [Suspect]
     Active Substance: CYCLOPHOSPHAMIDE
     Indication: Breast cancer female
     Dosage: 0.8 G, QD (IVGTT ST)
     Route: 041
     Dates: start: 20250830, end: 20250830
  2. SODIUM CHLORIDE [Suspect]
     Active Substance: SODIUM CHLORIDE
     Dosage: 250 ML, QD (CYCLOPHOSPHAMIDE+0.9% SODIUM CHLORIDE INJECTION) (IVGTT ST)
     Route: 041
     Dates: start: 20250830, end: 20250830
  3. SODIUM CHLORIDE [Suspect]
     Active Substance: SODIUM CHLORIDE
     Dosage: 100 ML, QD (EPIRUBICIN HYDROCHLORIDE + 0.9% SODIUM CHLORIDE INJECTION) (IVGTT ST)
     Route: 041
     Dates: start: 20250830, end: 20250830
  4. EPIRUBICIN HYDROCHLORIDE [Suspect]
     Active Substance: EPIRUBICIN HYDROCHLORIDE
     Indication: Breast cancer female
     Dosage: 120 MG, QD (IVGTT ST)
     Route: 041
     Dates: start: 20250830, end: 20250830

REACTIONS (1)
  - White blood cell count decreased [Recovering/Resolving]

NARRATIVE: CASE EVENT DATE: 20250912
